FAERS Safety Report 7325370-6 (Version None)
Quarter: 2011Q1

REPORT INFORMATION
  Report Type: 
  Country: None (occurrence: None)
  Receive Date: 20110302
  Receipt Date: 20110224
  Transmission Date: 20110831
  Serious: Yes (Hospitalization)
  Sender: FDA-Public Use
  Company Number: DK-AMGEN-DNKSP2011011335

PATIENT
  Age: 60 Year
  Sex: Male
  Weight: 90 kg

DRUGS (8)
  1. ENBREL [Suspect]
     Indication: PRODUCT USED FOR UNKNOWN INDICATION
     Dosage: UNK
     Dates: start: 20100226, end: 20101116
  2. REMICADE [Suspect]
     Indication: SERONEGATIVE ARTHRITIS
     Dosage: UNK
     Route: 042
     Dates: start: 20090907, end: 20100225
  3. FOLIMET [Concomitant]
     Dosage: 5 MG, 1X/DAY
     Route: 048
  4. CODEINE SUL TAB [Concomitant]
     Dosage: 1 G, 3 TIMES
     Route: 048
  5. METOJECT                           /00113801/ [Concomitant]
     Dosage: 25 MG, QWK
  6. IBUPROFEN [Concomitant]
     Dosage: 400 MG, TID
     Route: 048
  7. ALENDRONATE SODIUM [Concomitant]
     Dosage: 70 MG, QWK
     Route: 048
  8. SIMVASTATIN [Concomitant]
     Dosage: 20 MG, QD
     Route: 048

REACTIONS (1)
  - LANGERHANS' CELL HISTIOCYTOSIS [None]
